FAERS Safety Report 7824230-1 (Version None)
Quarter: 2011Q4

REPORT INFORMATION
  Report Type: 
  Country: None (occurrence: None)
  Receive Date: 20111019
  Receipt Date: 20111015
  Transmission Date: 20120403
  Serious: No
  Sender: FDA-Public Use
  Company Number: US-TEVA-305429USA

PATIENT
  Sex: Female
  Weight: 81.72 kg

DRUGS (1)
  1. PLAN B ONE-STEP [Suspect]
     Indication: POST COITAL CONTRACEPTION
     Dosage: 1.5 MILLIGRAM;
     Route: 048

REACTIONS (5)
  - ASTHENIA [None]
  - BREAST PAIN [None]
  - INCREASED APPETITE [None]
  - AFFECT LABILITY [None]
  - MENORRHAGIA [None]
